FAERS Safety Report 17631322 (Version 2)
Quarter: 2020Q2

REPORT INFORMATION
  Report Type: Spontaneous
  Country: BR (occurrence: BR)
  Receive Date: 20200406
  Receipt Date: 20200422
  Transmission Date: 20200713
  Serious: Yes (Other)
  Sender: FDA-Public Use
  Company Number: BR-SA-2020SA035140

PATIENT
  Sex: Male

DRUGS (1)
  1. STILNOX [Suspect]
     Active Substance: ZOLPIDEM TARTRATE

REACTIONS (3)
  - Hallucination [Unknown]
  - Dyspnoea [Unknown]
  - Feeling abnormal [Unknown]
